FAERS Safety Report 8942061 (Version 2)
Quarter: 2013Q2

REPORT INFORMATION
  Report Type: Spontaneous
  Country: US (occurrence: US)
  Receive Date: 20121203
  Receipt Date: 20130605
  Transmission Date: 20140414
  Serious: Yes (Hospitalization)
  Sender: FDA-Public Use
  Company Number: US-PFIZER INC-2012301432

PATIENT
  Sex: Female
  Weight: 39 kg

DRUGS (2)
  1. NORVASC [Suspect]
     Indication: HYPERTENSION
     Dosage: 10 MG, 1X/DAY
     Route: 048
     Dates: end: 2012
  2. LIPITOR [Suspect]
     Indication: BLOOD CHOLESTEROL INCREASED
     Dosage: 1 DF, UNK

REACTIONS (5)
  - Arthropathy [Unknown]
  - Hypotension [Unknown]
  - Body height decreased [Unknown]
  - Pain [Unknown]
  - Weight decreased [Unknown]
